FAERS Safety Report 4774938-X (Version None)
Quarter: 2005Q3

REPORT INFORMATION
  Report Type: 
  Country: None (occurrence: None)
  Receive Date: 20050919
  Receipt Date: 20050901
  Transmission Date: 20060218
  Serious: Yes (Death, Hospitalization)
  Sender: FDA-Public Use
  Company Number: 2005-DE-03514GD

PATIENT
  Age: 71 Year
  Sex: Female

DRUGS (7)
  1. PREDNISONE [Suspect]
     Indication: ASTHMA
     Dosage: 20 MG
  2. IPRATROPIUM BROMIDE [Suspect]
     Indication: RESPIRATORY DISTRESS
     Dosage: IH
     Route: 055
  3. ALBUTEROL SULFATE HFA [Suspect]
     Indication: RESPIRATORY DISTRESS
     Dosage: IH
     Route: 055
  4. STEROIDS (CORTICOSTEROIDS) [Suspect]
     Indication: RESPIRATORY DISTRESS
     Dosage: IH
     Route: 055
  5. MAGNESIUM SULFATE [Suspect]
     Indication: RESPIRATORY DISTRESS
  6. CEFTRIAXONE [Suspect]
     Indication: RESPIRATORY DISTRESS
     Dosage: 2 G IV
     Route: 042
  7. OFLOXACIN [Suspect]
     Indication: RESPIRATORY DISTRESS
     Dosage: 400 MG

REACTIONS (10)
  - BLOOD PRESSURE SYSTOLIC INCREASED [None]
  - DIALYSIS [None]
  - HEART RATE INCREASED [None]
  - HYPOXIA [None]
  - INFECTION IN AN IMMUNOCOMPROMISED HOST [None]
  - MULTI-ORGAN FAILURE [None]
  - PATHOGEN RESISTANCE [None]
  - PNEUMONIA BACTERIAL [None]
  - RESPIRATORY DISTRESS [None]
  - SEPTIC SHOCK [None]
